FAERS Safety Report 10715455 (Version 3)
Quarter: 2015Q4

REPORT INFORMATION
  Report Type: Report from Study
  Country: BR (occurrence: BR)
  Receive Date: 20150116
  Receipt Date: 20151126
  Transmission Date: 20160304
  Serious: Yes (Hospitalization, Other)
  Sender: FDA-Public Use
  Company Number: BR-ROCHE-1521485

PATIENT
  Age: 77 Year
  Sex: Female
  Weight: 67 kg

DRUGS (14)
  1. ACTEMRA [Suspect]
     Active Substance: TOCILIZUMAB
     Indication: RHEUMATOID ARTHRITIS
     Route: 042
     Dates: start: 20101001, end: 20150901
  2. SPIRONOLACTONE. [Concomitant]
     Active Substance: SPIRONOLACTONE
     Dosage: ONE TABLET IN THE MORNING
     Route: 065
  3. MABTHERA [Suspect]
     Active Substance: RITUXIMAB
     Indication: RHEUMATOID ARTHRITIS
     Route: 042
     Dates: start: 20151111
  4. CONCOR [Concomitant]
     Active Substance: BISOPROLOL FUMARATE
     Dosage: ONE TABLET IN THE MORNING AND ANOTHER ONE AT NIGHT
     Route: 065
  5. ARAVA [Concomitant]
     Active Substance: LEFLUNOMIDE
     Route: 065
  6. ADALAT [Concomitant]
     Active Substance: NIFEDIPINE
  7. TRAYENTA DUO [Concomitant]
     Active Substance: LINAGLIPTIN\METFORMIN HYDROCHLORIDE
     Dosage: ONE TABLET IN THE MORNING
     Route: 065
  8. LASIX [Concomitant]
     Active Substance: FUROSEMIDE
  9. ARAVA [Concomitant]
     Active Substance: LEFLUNOMIDE
     Dosage: ONE TABLET AT NIGHT
     Route: 065
  10. DIPYRONE [Concomitant]
     Active Substance: DIPYRONE
  11. SIMVASTATIN. [Concomitant]
     Active Substance: SIMVASTATIN
     Dosage: ONE TABLET AT NIGHT
     Route: 065
  12. ADALAT [Concomitant]
     Active Substance: NIFEDIPINE
     Dosage: ONE TABLET AT NIGHT
     Route: 065
  13. CYMBALTA [Concomitant]
     Active Substance: DULOXETINE HYDROCHLORIDE
     Dosage: ONE TABLET IN THE MORNING
     Route: 065
  14. OMEPRAZOLE. [Concomitant]
     Active Substance: OMEPRAZOLE
     Route: 065

REACTIONS (18)
  - Drug ineffective [Unknown]
  - Nosocomial infection [Recovered/Resolved]
  - Gallbladder perforation [Unknown]
  - Diabetes mellitus [Not Recovered/Not Resolved]
  - Impaired healing [Unknown]
  - Intestinal perforation [Unknown]
  - Cholecystitis [Unknown]
  - Infection [Unknown]
  - Immunodeficiency [Unknown]
  - Cholelithiasis [Unknown]
  - Bacterial infection [Not Recovered/Not Resolved]
  - Fistula [Unknown]
  - Hypertension [Not Recovered/Not Resolved]
  - Diarrhoea [Recovering/Resolving]
  - Clostridial infection [Unknown]
  - Synovial cyst [Recovering/Resolving]
  - Anaemia [Not Recovered/Not Resolved]
  - Back pain [Recovered/Resolved]

NARRATIVE: CASE EVENT DATE: 20141020
